FAERS Safety Report 23621167 (Version 1)
Quarter: 2024Q1

REPORT INFORMATION
  Report Type: Spontaneous
  Country: RO (occurrence: RO)
  Receive Date: 20240312
  Receipt Date: 20240312
  Transmission Date: 20240409
  Serious: Yes (Hospitalization, Other)
  Sender: FDA-Public Use
  Company Number: None

PATIENT
  Age: 42 Year
  Sex: Male

DRUGS (12)
  1. INTERFERON [Suspect]
     Active Substance: INTERFERON
     Indication: Chronic hepatitis C
     Dosage: UNK
     Route: 065
  2. MYCOPHENOLATE MOFETIL [Suspect]
     Active Substance: MYCOPHENOLATE MOFETIL
     Dosage: 1.000MG QD
     Route: 065
  3. MYCOPHENOLATE MOFETIL [Suspect]
     Active Substance: MYCOPHENOLATE MOFETIL
     Dosage: 1.500G QD
     Route: 065
  4. MYCOPHENOLATE MOFETIL [Suspect]
     Active Substance: MYCOPHENOLATE MOFETIL
     Indication: Immunosuppressant drug therapy
     Dosage: PROGRESSIVELY ADJUSTED AND LOWERED DURING THE NEXT YEAR AND A HALF
     Route: 065
  5. PREDNISONE [Suspect]
     Active Substance: PREDNISONE
     Dosage: 30.000MG QD
     Route: 065
  6. PREDNISONE [Suspect]
     Active Substance: PREDNISONE
     Dosage: 5.000MG QD
     Route: 065
  7. PREDNISONE [Suspect]
     Active Substance: PREDNISONE
     Indication: Immunosuppressant drug therapy
     Dosage: PROGRESSIVELY ADJUSTED AND LOWERED DURING THE NEXT YEAR AND A HALF
     Route: 065
  8. DASABUVIR\OMBITASVIR\PARITAPREVIR\RITONAVIR [Interacting]
     Active Substance: DASABUVIR\OMBITASVIR\PARITAPREVIR\RITONAVIR
     Indication: Chronic hepatitis C
     Dosage: UNK
     Route: 065
  9. TACROLIMUS [Interacting]
     Active Substance: TACROLIMUS
     Dosage: 10.000MG QD
     Route: 065
  10. TACROLIMUS [Interacting]
     Active Substance: TACROLIMUS
     Indication: Immunosuppressant drug therapy
     Dosage: 2.000MG QD
     Route: 065
  11. TACROLIMUS [Interacting]
     Active Substance: TACROLIMUS
     Dosage: 2.000MG
     Route: 065
  12. TACROLIMUS [Interacting]
     Active Substance: TACROLIMUS
     Dosage: PROGRESSIVELY ADJUSTED AND LOWERED DURING THE NEXT YEAR AND A HALF
     Route: 065

REACTIONS (12)
  - Infection reactivation [Recovered/Resolved]
  - Vision blurred [Recovered/Resolved]
  - Urine ketone body present [Recovered/Resolved]
  - Cardiac valve disease [Unknown]
  - Chronic hepatitis C [Recovered/Resolved]
  - Angina pectoris [Unknown]
  - Inappropriate schedule of product administration [Recovered/Resolved]
  - Diabetes mellitus [Recovered/Resolved]
  - Drug level increased [Recovered/Resolved]
  - Accidental overdose [Recovered/Resolved]
  - Anxiety [Recovered/Resolved]
  - Drug interaction [Recovered/Resolved]
